FAERS Safety Report 7996415-5 (Version None)
Quarter: 2011Q4

REPORT INFORMATION
  Report Type: 
  Country: None (occurrence: None)
  Receive Date: 20111220
  Receipt Date: 20111215
  Transmission Date: 20120403
  Serious: Yes (Hospitalization)
  Sender: FDA-Public Use
  Company Number: DE-ROCHE-1023339

PATIENT
  Sex: Female
  Weight: 61 kg

DRUGS (2)
  1. AVASTIN [Suspect]
     Indication: BREAST CANCER METASTATIC
  2. AMPICILLIN SODIUM/SULBACTAM SODIUM [Suspect]
     Indication: OSTEONECROSIS
     Dates: start: 20111204, end: 20111209

REACTIONS (1)
  - OSTEONECROSIS OF JAW [None]
